FAERS Safety Report 7345034-2 (Version None)
Quarter: 2011Q1

REPORT INFORMATION
  Report Type: 
  Country: None (occurrence: None)
  Receive Date: 20110310
  Receipt Date: 20110301
  Transmission Date: 20110831
  Serious: Yes (Death)
  Sender: FDA-Public Use
  Company Number: US-MILLENNIUM PHARMACEUTICALS, INC.-2011-00851

PATIENT
  Sex: Male

DRUGS (1)
  1. VELCADE [Suspect]
     Indication: B-CELL LYMPHOMA
     Dosage: UNK

REACTIONS (1)
  - DEATH [None]
